FAERS Safety Report 4644759-7 (Version None)
Quarter: 2005Q2

REPORT INFORMATION
  Report Type: 
  Country: None (occurrence: None)
  Receive Date: 20050426
  Receipt Date: 20050328
  Transmission Date: 20051028
  Serious: Yes (Other)
  Sender: FDA-Public Use
  Company Number: 200510943JP

PATIENT
  Age: 74 Year
  Sex: Female
  Weight: 55 kg

DRUGS (10)
  1. KETEK [Suspect]
     Indication: BRONCHITIS
     Route: 048
     Dates: start: 20050324, end: 20050325
  2. MYSLEE [Suspect]
     Indication: INSOMNIA
     Route: 048
     Dates: start: 20050324, end: 20050325
  3. PL GRAN. [Concomitant]
     Indication: PHARYNGITIS
     Route: 048
     Dates: start: 20050324, end: 20050325
  4. ORACEF [Concomitant]
     Indication: BRONCHITIS
     Route: 048
     Dates: start: 20050319, end: 20050324
  5. PAROTIN [Concomitant]
     Indication: CATARACT
     Route: 048
     Dates: start: 20010904
  6. HIBON [Concomitant]
     Indication: STOMATITIS
     Route: 048
     Dates: start: 20010904
  7. CINAL [Concomitant]
     Indication: PIGMENTATION DISORDER
     Route: 048
     Dates: start: 20010904
  8. EVOXAC [Concomitant]
     Indication: SJOGREN'S SYNDROME
     Route: 048
     Dates: start: 20031113
  9. HALCION [Concomitant]
     Indication: INSOMNIA
     Route: 048
     Dates: start: 19970910
  10. EXACIN [Concomitant]
     Indication: BRONCHITIS
     Route: 030
     Dates: start: 20050324, end: 20050324

REACTIONS (6)
  - ABNORMAL BEHAVIOUR [None]
  - AMNESIA [None]
  - DEPRESSED LEVEL OF CONSCIOUSNESS [None]
  - FALL [None]
  - HEAD INJURY [None]
  - MEMORY IMPAIRMENT [None]
